FAERS Safety Report 12830956 (Version 1)
Quarter: 2016Q4

REPORT INFORMATION
  Report Type: Spontaneous
  Country: JP (occurrence: JP)
  Receive Date: 20161007
  Receipt Date: 20161007
  Transmission Date: 20170207
  Serious: Yes (Life-Threatening, Other)
  Sender: FDA-Public Use
  Company Number: JP-ASTRAZENECA-2016SF05987

PATIENT
  Age: 44 Year
  Sex: Male

DRUGS (2)
  1. DOGMATYL [Suspect]
     Active Substance: SULPIRIDE
     Indication: DEPRESSION
     Route: 048
     Dates: start: 201311, end: 201311
  2. SEROQUEL [Suspect]
     Active Substance: QUETIAPINE FUMARATE
     Indication: INSOMNIA
     Dosage: 6.25MG UNKNOWN
     Route: 048

REACTIONS (4)
  - Tardive dyskinesia [Unknown]
  - Cerebral haemorrhage [Unknown]
  - Off label use [Unknown]
  - Apallic syndrome [Unknown]
